FAERS Safety Report 15802768 (Version 1)
Quarter: 2019Q1

REPORT INFORMATION
  Report Type: Spontaneous
  Country: JP (occurrence: JP)
  Receive Date: 20190109
  Receipt Date: 20190109
  Transmission Date: 20190417
  Serious: Yes (Hospitalization)
  Sender: FDA-Public Use
  Company Number: JP-BAYER-2019-004861

PATIENT
  Age: 83 Year
  Sex: Male
  Weight: 45.5 kg

DRUGS (16)
  1. ICLUSIG [Suspect]
     Active Substance: PONATINIB
     Indication: ACUTE LYMPHOCYTIC LEUKAEMIA
     Dosage: DAILY DOSE 15 MG
     Dates: start: 20180526
  2. ROZEREM [Suspect]
     Active Substance: RAMELTEON
     Indication: PRODUCT USED FOR UNKNOWN INDICATION
     Dosage: UNK
  3. CYLOCIDE [Concomitant]
     Active Substance: CYTARABINE
     Dosage: UNK
     Route: 042
     Dates: start: 20180207, end: 20180402
  4. ADRIACIN [Concomitant]
     Active Substance: DOXORUBICIN HYDROCHLORIDE
  5. FEBURIC [Suspect]
     Active Substance: FEBUXOSTAT
     Indication: PRODUCT USED FOR UNKNOWN INDICATION
     Dosage: UNK
  6. METHOTREXATE. [Concomitant]
     Active Substance: METHOTREXATE
     Dosage: UNK
     Route: 042
     Dates: start: 20180207, end: 20180402
  7. ICLUSIG [Suspect]
     Active Substance: PONATINIB
     Indication: ACUTE LYMPHOCYTIC LEUKAEMIA
     Dosage: DAILY DOSE 15 MG
  8. PREDNISOLONE. [Concomitant]
     Active Substance: PREDNISOLONE
     Dosage: UNK
     Route: 042
     Dates: start: 20171114, end: 20180402
  9. ENDOXAN [CYCLOPHOSPHAMIDE MONOHYDRATE] [Concomitant]
     Active Substance: CYCLOPHOSPHAMIDE
  10. BAKTAR [Suspect]
     Active Substance: SULFAMETHOXAZOLE\TRIMETHOPRIM
     Indication: PRODUCT USED FOR UNKNOWN INDICATION
     Dosage: UNK
  11. BAYASPIRIN 100 MG [Suspect]
     Active Substance: ASPIRIN
     Indication: PRODUCT USED FOR UNKNOWN INDICATION
     Dosage: UNK
     Route: 048
  12. ICLUSIG [Suspect]
     Active Substance: PONATINIB
     Indication: ACUTE LYMPHOCYTIC LEUKAEMIA
     Dosage: DAILY DOSE 15 MG
     Route: 048
     Dates: start: 20180111, end: 20180516
  13. PARIET [Suspect]
     Active Substance: RABEPRAZOLE SODIUM
     Indication: PRODUCT USED FOR UNKNOWN INDICATION
     Dosage: UNK
  14. BARACLUDE [Suspect]
     Active Substance: ENTECAVIR
     Indication: PRODUCT USED FOR UNKNOWN INDICATION
     Dosage: UNK
  15. WARFARIN POTASSIUM [Concomitant]
     Active Substance: WARFARIN POTASSIUM
     Dosage: UNK
     Route: 048
     Dates: start: 20151008
  16. ONCOVIN [Concomitant]
     Active Substance: VINCRISTINE SULFATE

REACTIONS (1)
  - Cardiac failure acute [Recovered/Resolved]

NARRATIVE: CASE EVENT DATE: 20180517
